FAERS Safety Report 15520274 (Version 1)
Quarter: 2018Q4

REPORT INFORMATION
  Report Type: Report from Study
  Country: US (occurrence: US)
  Receive Date: 20181017
  Receipt Date: 20181017
  Transmission Date: 20190205
  Serious: No
  Sender: FDA-Public Use
  Company Number: PHEH2018US043448

PATIENT
  Sex: Female

DRUGS (2)
  1. AZOPT [Suspect]
     Active Substance: BRINZOLAMIDE
     Indication: INTRAOCULAR PRESSURE INCREASED
     Route: 047
  2. TRAVATAN Z [Suspect]
     Active Substance: TRAVOPROST
     Indication: INTRAOCULAR PRESSURE INCREASED
     Route: 047

REACTIONS (4)
  - Hypertension [Unknown]
  - Condition aggravated [Unknown]
  - Headache [Unknown]
  - Intraocular pressure increased [Unknown]
